FAERS Safety Report 11848878 (Version 1)
Quarter: 2015Q4

REPORT INFORMATION
  Report Type: Spontaneous
  Country: US (occurrence: None)
  Receive Date: 20151217
  Receipt Date: 20151217
  Transmission Date: 20160305
  Serious: Yes (Hospitalization)
  Sender: FDA-Public Use
  Company Number: None

PATIENT
  Age: 54 Year
  Sex: Male

DRUGS (2)
  1. TEMOZOLOMIDE. [Suspect]
     Active Substance: TEMOZOLOMIDE
     Indication: PRODUCT USED FOR UNKNOWN INDICATION
     Dosage: 2-100 MG TABS + 140 MG TAB.
     Route: 048
     Dates: start: 20151117
  2. TEMOZOLOMIDE. [Suspect]
     Active Substance: TEMOZOLOMIDE
     Indication: PRODUCT USED FOR UNKNOWN INDICATION
     Dosage: 140 MG TAB. + 2-100 MG TABS.
     Route: 048
     Dates: start: 20151117

REACTIONS (2)
  - Dehydration [None]
  - Eating disorder [None]

NARRATIVE: CASE EVENT DATE: 20151209
